FAERS Safety Report 5351098-8 (Version None)
Quarter: 2007Q2

REPORT INFORMATION
  Report Type: 
  Country: None (occurrence: None)
  Receive Date: 20070608
  Receipt Date: 20070523
  Transmission Date: 20071010
  Serious: Yes (Hospitalization, Other)
  Sender: FDA-Public Use
  Company Number: US-PFIZER INC-2007022952

PATIENT
  Age: 37 Year
  Sex: Male
  Weight: 104.3 kg

DRUGS (2)
  1. CELEBREX [Suspect]
     Indication: OSTEOARTHRITIS
     Route: 048
     Dates: start: 20000304, end: 20020408
  2. BEXTRA [Suspect]
     Indication: OSTEOARTHRITIS
     Route: 048

REACTIONS (4)
  - ACUTE CORONARY SYNDROME [None]
  - CARDIOVASCULAR DISORDER [None]
  - MYOCARDIAL INFARCTION [None]
  - RASH [None]
